FAERS Safety Report 6047644-1 (Version None)
Quarter: 2009Q1

REPORT INFORMATION
  Report Type: 
  Country: None (occurrence: None)
  Receive Date: 20090123
  Receipt Date: 20080924
  Transmission Date: 20090719
  Serious: No
  Sender: FDA-Public Use
  Company Number: A0749030A

PATIENT
  Age: 29 Year
  Sex: Female

DRUGS (2)
  1. HYCAMTIN [Suspect]
     Dosage: 25MG UNKNOWN
     Route: 042
     Dates: start: 20080923
  2. CISPLATIN [Concomitant]

REACTIONS (2)
  - MEDICATION ERROR [None]
  - OVERDOSE [None]
